FAERS Safety Report 8077592-7 (Version None)
Quarter: 2012Q1

REPORT INFORMATION
  Report Type: 
  Country: None (occurrence: None)
  Receive Date: 20120127
  Receipt Date: 20120123
  Transmission Date: 20120608
  Serious: Yes (Other)
  Sender: FDA-Public Use
  Company Number: US-PFIZER INC-2012019372

PATIENT
  Sex: Female
  Weight: 70.295 kg

DRUGS (3)
  1. LATANOPROST [Suspect]
     Indication: GLAUCOMA
     Dosage: 1 GTT IN EACH EYE, DAILY
     Route: 047
     Dates: end: 20110101
  2. XALATAN [Suspect]
     Indication: GLAUCOMA
     Dosage: 1 GTT IN EACH EYE, DAILY
     Route: 047
  3. LEVOTHYROXINE SODIUM [Concomitant]
     Dosage: UNK
     Dates: end: 20110101

REACTIONS (2)
  - SINUS DISORDER [None]
  - DYSPNOEA [None]
